FAERS Safety Report 9306105 (Version 1)
Quarter: 2013Q1

REPORT INFORMATION
  Report Type: Spontaneous
  Country: US (occurrence: None)
  Receive Date: 20130305
  Receipt Date: 20130305
  Transmission Date: 20140127
  Serious: Yes (Other)
  Sender: FDA-Public Use
  Company Number: 201301068

PATIENT
  Age: 86 Year
  Sex: Male
  Weight: 74.84 kg

DRUGS (10)
  1. XIAFLEX [Suspect]
     Indication: DUPUYTREN^S CONTRACTURE
     Dosage: 1 IN 1 D, INTRALESIONAL
     Dates: start: 20121004, end: 20121004
  2. HYDROCHLOROTHIAZIDE (HYDROCHLORODTHIAZIDE) [Concomitant]
  3. ACTONEL (RISERDRONATE SODIUM) [Concomitant]
  4. ATENOLOL (ATENOLOL) [Concomitant]
  5. LOSARTAN (LOSARTAN) [Concomitant]
  6. WARFARIN (WARFARIN) [Concomitant]
  7. CALCIUM (CALCIUM) [Concomitant]
  8. HYDROCODONE (HYDROCODONE) [Concomitant]
  9. ZOLPIDEM (ZOLPIDEM) [Concomitant]
  10. LIDOCAINE (LIDOCAINE) [Concomitant]

REACTIONS (10)
  - Pain [None]
  - Feeling abnormal [None]
  - Oral mucosal exfoliation [None]
  - Oedema peripheral [None]
  - Skin exfoliation [None]
  - Local swelling [None]
  - Vomiting [None]
  - Abdominal pain upper [None]
  - Hypersensitivity [None]
  - Skin discolouration [None]
